FAERS Safety Report 22608684 (Version 1)
Quarter: 2023Q2

REPORT INFORMATION
  Report Type: Spontaneous
  Country: US (occurrence: US)
  Receive Date: 20230616
  Receipt Date: 20230616
  Transmission Date: 20230721
  Serious: No
  Sender: FDA-Public Use
  Company Number: US-SA-SAC20230614001018

PATIENT
  Sex: Male

DRUGS (4)
  1. ALPROLIX [Suspect]
     Active Substance: EFTRENONACOG ALFA
     Indication: Factor VIII deficiency
     Dosage: 500 IU, QW
     Route: 042
     Dates: start: 202104
  2. ALPROLIX [Suspect]
     Active Substance: EFTRENONACOG ALFA
     Indication: Factor VIII deficiency
     Dosage: 500 IU, QW
     Route: 042
     Dates: start: 202104
  3. ALPROLIX [Suspect]
     Active Substance: EFTRENONACOG ALFA
     Indication: Factor IX deficiency
     Dosage: 1600 U, QW; (1440-1760) SLOW IV PUSH EVERY 7 DAYS
     Route: 042
  4. ALPROLIX [Suspect]
     Active Substance: EFTRENONACOG ALFA
     Indication: Factor IX deficiency
     Dosage: 1600 U, QW; (1440-1760) SLOW IV PUSH EVERY 7 DAYS
     Route: 042

REACTIONS (2)
  - Mouth haemorrhage [Not Recovered/Not Resolved]
  - Product use in unapproved indication [Unknown]
